FAERS Safety Report 8966469 (Version 2)
Quarter: 2013Q2

REPORT INFORMATION
  Report Type: Spontaneous
  Country: US (occurrence: US)
  Receive Date: 20121216
  Receipt Date: 20130407
  Transmission Date: 20140414
  Serious: No
  Sender: FDA-Public Use
  Company Number: US-ASTRAZENECA-2012SE88693

PATIENT
  Age: 69 Year
  Sex: Male

DRUGS (7)
  1. CAPRELSA [Suspect]
     Indication: THYROID CANCER
     Route: 048
     Dates: start: 20121106
  2. CAPRELSA [Suspect]
     Indication: THYROID CANCER
     Route: 048
     Dates: start: 20121106
  3. BROVANA [Concomitant]
  4. HYDROCHLOROTHIAZIDE [Concomitant]
  5. MUCINEX [Concomitant]
  6. POTASSIUM [Concomitant]
  7. PROPYLTHIOURACIL [Concomitant]

REACTIONS (2)
  - Blood potassium decreased [Unknown]
  - Rash [Unknown]
